FAERS Safety Report 16475084 (Version 1)
Quarter: 2019Q2

REPORT INFORMATION
  Report Type: Spontaneous
  Country: FR (occurrence: FR)
  Receive Date: 20190625
  Receipt Date: 20190625
  Transmission Date: 20190711
  Serious: Yes (Other)
  Sender: FDA-Public Use
  Company Number: FR-MYLANLABS-2019M1059059

PATIENT
  Age: 71 Year
  Sex: Male
  Weight: 88 kg

DRUGS (3)
  1. GEMCITABINE [Suspect]
     Active Substance: GEMCITABINE\GEMCITABINE HYDROCHLORIDE
     Indication: BLADDER TRANSITIONAL CELL CARCINOMA RECURRENT
     Dosage: 3750 MILLIGRAM/SQ. METER, MONTHLY
     Route: 042
     Dates: start: 20180221, end: 20180604
  2. CARBOPLATIN. [Suspect]
     Active Substance: CARBOPLATIN
     Indication: BLADDER TRANSITIONAL CELL CARCINOMA RECURRENT
     Dosage: AUC 5 CALVERT
     Route: 042
     Dates: start: 20180221, end: 20180530
  3. PACLITAXEL. [Suspect]
     Active Substance: PACLITAXEL
     Indication: BLADDER TRANSITIONAL CELL CARCINOMA RECURRENT
     Dosage: 90 MILLIGRAM/SQ. METER, QW
     Route: 042
     Dates: start: 20181129, end: 20190207

REACTIONS (1)
  - Scleroderma-like reaction [Not Recovered/Not Resolved]

NARRATIVE: CASE EVENT DATE: 20181228
